FAERS Safety Report 16658029 (Version 1)
Quarter: 2019Q3

REPORT INFORMATION
  Report Type: Spontaneous
  Country: US (occurrence: US)
  Receive Date: 20190801
  Receipt Date: 20190801
  Transmission Date: 20191004
  Serious: No
  Sender: FDA-Public Use
  Company Number: US-SUNOVION-2019SUN003141

PATIENT
  Sex: Male

DRUGS (2)
  1. LATUDA [Suspect]
     Active Substance: LURASIDONE HYDROCHLORIDE
     Indication: PYREXIA
  2. LATUDA [Suspect]
     Active Substance: LURASIDONE HYDROCHLORIDE
     Indication: CENTRAL NERVOUS SYSTEM INJURY
     Dosage: 20 MG, QD
     Route: 048

REACTIONS (8)
  - Logorrhoea [Unknown]
  - Dysarthria [Unknown]
  - Off label use [Unknown]
  - Insomnia [Unknown]
  - Mania [Unknown]
  - Energy increased [Unknown]
  - Dizziness [Unknown]
  - Blood glucose increased [Unknown]
